FAERS Safety Report 7382843-8 (Version None)
Quarter: 2011Q1

REPORT INFORMATION
  Report Type: 
  Country: None (occurrence: None)
  Receive Date: 20110330
  Receipt Date: 20110318
  Transmission Date: 20110831
  Serious: Yes (Hospitalization)
  Sender: FDA-Public Use
  Company Number: JP-AMGEN-JPNCT2011016088

PATIENT
  Age: 44 Year
  Sex: Female
  Weight: 67 kg

DRUGS (12)
  1. LIPITOR [Concomitant]
     Dosage: UNK
     Route: 048
     Dates: start: 20070806
  2. TAKEPRON [Concomitant]
     Dosage: UNK
     Route: 048
     Dates: start: 20070806
  3. AZULFIDINE [Concomitant]
     Dosage: UNK
     Route: 048
     Dates: start: 20070809
  4. INDOMETHACIN SODIUM [Concomitant]
     Dosage: UNK
     Route: 048
     Dates: start: 20070806
  5. RIMATIL [Concomitant]
     Dosage: UNK
     Route: 048
     Dates: start: 20070806, end: 20081208
  6. BASEN [Concomitant]
     Dosage: UNK
     Route: 048
     Dates: start: 20070806
  7. PREDONINE                          /00016201/ [Suspect]
     Indication: INFLAMMATION
     Dosage: 5 MG, 1X/DAY
     Route: 048
     Dates: start: 20070806
  8. MUCOSTA [Concomitant]
     Dosage: UNK
     Route: 048
     Dates: start: 20070806
  9. ETANERCEPT [Suspect]
     Indication: RHEUMATOID ARTHRITIS
     Dosage: 25 MG, 2 TIMES/WK
     Route: 058
     Dates: start: 20070823, end: 20080807
  10. ETANERCEPT [Suspect]
     Dosage: 25 MG, 2 TIMES/WK
     Route: 058
     Dates: start: 20080929
  11. TACROLIMUS MONOHYDRATE [Concomitant]
     Indication: IMMUNOSUPPRESSION
  12. ETANERCEPT [Suspect]
     Dosage: 25 MG, 2 TIMES/WK
     Route: 058
     Dates: start: 20080807, end: 20080831

REACTIONS (1)
  - TENDON RUPTURE [None]
